FAERS Safety Report 20494371 (Version 1)
Quarter: 2022Q1

REPORT INFORMATION
  Report Type: Report from Study
  Country: US (occurrence: US)
  Receive Date: 20220221
  Receipt Date: 20220221
  Transmission Date: 20220423
  Serious: Yes (Other)
  Sender: FDA-Public Use
  Company Number: US-ALNYLAM PHARMACEUTICALS, INC.-ALN-2022-000629

PATIENT

DRUGS (2)
  1. ONPATTRO [Suspect]
     Active Substance: PATISIRAN SODIUM
     Indication: Product used for unknown indication
     Route: 042
  2. DEXAMETHASONE [Concomitant]
     Active Substance: DEXAMETHASONE
     Indication: Prophylaxis
     Dosage: 10 MILLILITER
     Route: 065
     Dates: start: 20220131

REACTIONS (6)
  - Loss of consciousness [Unknown]
  - Deafness [Unknown]
  - Blindness [Unknown]
  - Nausea [Unknown]
  - Burning sensation [Unknown]
  - Medication error [Unknown]

NARRATIVE: CASE EVENT DATE: 20220131
